FAERS Safety Report 12979837 (Version 6)
Quarter: 2017Q1

REPORT INFORMATION
  Report Type: Spontaneous
  Country: GB (occurrence: GB)
  Receive Date: 20161128
  Receipt Date: 20170314
  Transmission Date: 20170428
  Serious: Yes (Hospitalization, Other)
  Sender: FDA-Public Use
  Company Number: PHFR2016GB009363

PATIENT
  Sex: Male

DRUGS (2)
  1. TRAMETINIB [Suspect]
     Active Substance: TRAMETINIB
     Indication: METASTATIC MALIGNANT MELANOMA
     Route: 065
  2. DABRAFENIB [Suspect]
     Active Substance: DABRAFENIB
     Indication: METASTATIC MALIGNANT MELANOMA
     Route: 065

REACTIONS (25)
  - Creatinine renal clearance increased [Recovered/Resolved]
  - Joint effusion [Unknown]
  - Infection [Unknown]
  - Lymphadenopathy [Unknown]
  - Influenza like illness [Unknown]
  - Vomiting [Unknown]
  - Pain in extremity [Unknown]
  - Glomerulonephritis [Recovering/Resolving]
  - Tubulointerstitial nephritis [Recovering/Resolving]
  - Splenomegaly [Unknown]
  - Arteriosclerosis [Unknown]
  - Peripheral swelling [Unknown]
  - Axillary vein thrombosis [Unknown]
  - Muscle oedema [Unknown]
  - Rotator cuff syndrome [Unknown]
  - Muscle atrophy [Unknown]
  - Renal impairment [Recovered/Resolved]
  - Acute kidney injury [Recovered/Resolved]
  - Kidney fibrosis [Recovering/Resolving]
  - Hepatic fibrosis [Recovering/Resolving]
  - Hepatomegaly [Unknown]
  - Osteoarthritis [Unknown]
  - Bursitis [Unknown]
  - Atelectasis [Unknown]
  - Nausea [Unknown]
